FAERS Safety Report 5346649-3 (Version None)
Quarter: 2007Q2

REPORT INFORMATION
  Report Type: 
  Country: None (occurrence: None)
  Receive Date: 20070604
  Receipt Date: 20070524
  Transmission Date: 20071010
  Serious: Yes (Death)
  Sender: FDA-Public Use
  Company Number: GXKR2007JP04619

PATIENT
  Age: 35 Year
  Sex: Male

DRUGS (4)
  1. METHYLPREDNISOLONE [Suspect]
     Indication: PNEUMOCYSTIS JIROVECI PNEUMONIA
     Dosage: SEE IMAGE
  2. PREDNISOLONE [Suspect]
     Indication: PNEUMOCYSTIS JIROVECI PNEUMONIA
     Dosage: SEE IMAGE
  3. SULFAMETHOXAZOLE W/TRIMETHOPRIM [Concomitant]
  4. GANCYCLOVIR (GANCYCLOVIR) [Concomitant]

REACTIONS (6)
  - ADRENAL INSUFFICIENCY [None]
  - ARRHYTHMIA [None]
  - CARDIO-RESPIRATORY ARREST [None]
  - HYPERKALAEMIA [None]
  - HYPONATRAEMIA [None]
  - VOMITING [None]
